FAERS Safety Report 23467146 (Version 1)
Quarter: 2024Q1

REPORT INFORMATION
  Report Type: Spontaneous
  Country: TR (occurrence: TR)
  Receive Date: 20240201
  Receipt Date: 20240201
  Transmission Date: 20240409
  Serious: Yes (Other)
  Sender: FDA-Public Use
  Company Number: US-LUNDBECK-DKLU3072954

PATIENT
  Age: 10 Month
  Sex: Female

DRUGS (2)
  1. VIGABATRIN [Suspect]
     Active Substance: VIGABATRIN
     Indication: Infantile spasms
     Dosage: 135 MG/KG, QD (AT THE AGE OF 6 MONTHS)
     Route: 048
  2. VIGABATRIN [Suspect]
     Active Substance: VIGABATRIN
     Indication: Generalised tonic-clonic seizure
     Dosage: 150 MG/KG, QD (AT THE AGE OF 8 MONTHS)
     Route: 048

REACTIONS (1)
  - Toxicity to various agents [Unknown]
